FAERS Safety Report 10053223 (Version 1)
Quarter: 2014Q2

REPORT INFORMATION
  Report Type: Report from Study
  Country: US (occurrence: US)
  Receive Date: 20140402
  Receipt Date: 20140402
  Transmission Date: 20141212
  Serious: Yes (Hospitalization)
  Sender: FDA-Public Use
  Company Number: US-JNJFOC-20140317064

PATIENT
  Age: 12 Year
  Sex: Female
  Weight: 23.7 kg

DRUGS (6)
  1. REMICADE [Suspect]
     Indication: INFLAMMATORY BOWEL DISEASE
     Route: 042
     Dates: start: 20130405
  2. HUMIRA [Concomitant]
     Indication: INFLAMMATORY BOWEL DISEASE
     Route: 065
     Dates: start: 20130816, end: 20130922
  3. METHOTREXATE [Concomitant]
     Indication: INFLAMMATORY BOWEL DISEASE
     Route: 065
  4. PREDNISONE [Concomitant]
     Indication: INFLAMMATORY BOWEL DISEASE
     Route: 065
  5. LEUCOVORIN [Concomitant]
     Route: 065
  6. NALTREXONE [Concomitant]
     Route: 065

REACTIONS (1)
  - Inflammatory bowel disease [Recovered/Resolved]
